FAERS Safety Report 7180516-8 (Version None)
Quarter: 2010Q4

REPORT INFORMATION
  Report Type: 
  Country: None (occurrence: None)
  Receive Date: 20101123
  Receipt Date: 20100723
  Transmission Date: 20110411
  Serious: No
  Sender: FDA-Public Use
  Company Number: 012426

PATIENT
  Sex: Female
  Weight: 88.4 kg

DRUGS (4)
  1. CIMZIA [Suspect]
     Indication: CROHN'S DISEASE
     Dosage: (400 MG 1X/MONTH SUBCUTANEOUS)
     Route: 058
     Dates: start: 20091101
  2. MESALAMINE [Concomitant]
  3. MULTI-VITAMINS [Concomitant]
  4. ALBUTEROL [Concomitant]

REACTIONS (2)
  - ALOPECIA [None]
  - FATIGUE [None]
